FAERS Safety Report 7295136-4 (Version None)
Quarter: 2011Q1

REPORT INFORMATION
  Report Type: 
  Country: None (occurrence: None)
  Receive Date: 20110211
  Receipt Date: 20110211
  Transmission Date: 20110831
  Serious: Yes (Other)
  Sender: FDA-Public Use
  Company Number: None

PATIENT
  Age: 37 Year
  Sex: Male
  Weight: 111.1313 kg

DRUGS (1)
  1. LORTAB [Suspect]
     Indication: PROCEDURAL PAIN
     Dosage: 1 TABLET 6-8 HOURS PO
     Route: 048
     Dates: start: 20110113, end: 20110209

REACTIONS (10)
  - CONSTIPATION [None]
  - HEARING IMPAIRED [None]
  - MOOD ALTERED [None]
  - MICTURITION DISORDER [None]
  - VISION BLURRED [None]
  - NAUSEA [None]
  - DRUG HYPERSENSITIVITY [None]
  - SOMNOLENCE [None]
  - DIZZINESS [None]
  - FATIGUE [None]
